FAERS Safety Report 5222682-7 (Version None)
Quarter: 2007Q1

REPORT INFORMATION
  Report Type: 
  Country: None (occurrence: None)
  Receive Date: 20070129
  Receipt Date: 20070119
  Transmission Date: 20070707
  Serious: Yes (Death, Hospitalization)
  Sender: FDA-Public Use
  Company Number: FR-ABBOTT-07P-056-0356331-00

PATIENT
  Age: 84 Year
  Sex: Male
  Weight: 62 kg

DRUGS (9)
  1. LIPANTHYL CAPSULES [Suspect]
     Indication: DYSLIPIDAEMIA
     Route: 048
     Dates: end: 20061122
  2. ASPIRIN [Concomitant]
     Indication: DRUG USE FOR UNKNOWN INDICATION
  3. UDRAMIL [Concomitant]
     Indication: DRUG USE FOR UNKNOWN INDICATION
  4. GLYCERYL TRINITRATE [Concomitant]
     Indication: DRUG USE FOR UNKNOWN INDICATION
  5. ACARBOSE [Concomitant]
     Indication: DRUG USE FOR UNKNOWN INDICATION
     Dates: end: 20061113
  6. RILMENIDINE [Concomitant]
     Indication: DRUG USE FOR UNKNOWN INDICATION
  7. PANTOPRAZOLE SODIUM [Concomitant]
     Indication: DRUG USE FOR UNKNOWN INDICATION
  8. NAFTIDROFURYL OXALATE [Concomitant]
     Indication: DRUG USE FOR UNKNOWN INDICATION
  9. METFORMIN [Concomitant]
     Indication: DRUG USE FOR UNKNOWN INDICATION
     Dates: end: 20061113

REACTIONS (13)
  - ACUTE RESPIRATORY DISTRESS SYNDROME [None]
  - ASTHENIA [None]
  - BLOOD CREATINE PHOSPHOKINASE INCREASED [None]
  - FALL [None]
  - GENERAL PHYSICAL HEALTH DETERIORATION [None]
  - HYPEROSMOLAR STATE [None]
  - INFLUENZA LIKE ILLNESS [None]
  - MUSCLE DISORDER [None]
  - ODYNOPHAGIA [None]
  - PNEUMONIA ASPIRATION [None]
  - POLYMYOSITIS [None]
  - RHABDOMYOLYSIS [None]
  - SEPSIS [None]
